FAERS Safety Report 8488315-1 (Version None)
Quarter: 2012Q2

REPORT INFORMATION
  Report Type: 
  Country: None (occurrence: None)
  Receive Date: 20120620
  Receipt Date: 20120608
  Transmission Date: 20120825
  Serious: Yes (Hospitalization, Other)
  Sender: FDA-Public Use
  Company Number: 2012PROUSA01476

PATIENT
  Age: 95 Year
  Sex: Male
  Weight: 64.4 kg

DRUGS (22)
  1. TAMSULOSIN HCL [Concomitant]
  2. CALCIUM CARBONATE AND VITAMIN D (CALCIUM CARBONATE, COLECALCIFEROL) [Concomitant]
  3. GLUCOSAMINE SULFATE (GLUCOSAMINE SULFATE) [Concomitant]
  4. FOSAMAX [Concomitant]
  5. PROVENGE [Suspect]
     Indication: PROSTATE CANCER METASTATIC
     Dosage: 250 ML, SINGLE, INTRAVENOUS
     Route: 042
     Dates: start: 20120504, end: 20120524
  6. ACIDOPHILUS (LACTOBACILLUS ACIDOPHILUS) [Concomitant]
  7. DILTIAZEM HYDROCHLORIDE [Concomitant]
  8. COENZYME Q10 [Concomitant]
  9. LYCOPENE (LYCOPENE) [Concomitant]
  10. FOLTAB (FOLIC ACID) [Concomitant]
  11. LIPITOR [Concomitant]
  12. LUTEIN (LUTEIN) [Concomitant]
  13. VITAMIN B COMPLEX (VITAMIN B COMPLEX) [Concomitant]
  14. MULTIPLE VITAMINS (ASCORBIC ACID, ERGOCALCIFEROL, FOLIC ACID, RETINOL, [Concomitant]
  15. FISH OIL (FISH OIL) [Concomitant]
  16. PREDNISONE TAB [Concomitant]
  17. ACETAMINOPHEN [Concomitant]
  18. NAPROXEN (ALEVE) [Concomitant]
  19. GARLIC (GARLIC) [Concomitant]
  20. MAGNESIUM HYDROXIDE TAB [Concomitant]
  21. CHOLECALCIFEROL (CHOIECALCIFEROL) [Concomitant]
  22. PLAVIX [Concomitant]

REACTIONS (13)
  - URINE OUTPUT DECREASED [None]
  - BLOOD CREATININE INCREASED [None]
  - OBSTRUCTIVE UROPATHY [None]
  - FATIGUE [None]
  - BLOOD UREA INCREASED [None]
  - PLATELET COUNT DECREASED [None]
  - DECREASED APPETITE [None]
  - MALAISE [None]
  - RENAL FAILURE [None]
  - CONSTIPATION [None]
  - DISEASE PROGRESSION [None]
  - METASTASES TO LIVER [None]
  - ASTHENIA [None]
